FAERS Safety Report 24451285 (Version 1)
Quarter: 2024Q4

REPORT INFORMATION
  Report Type: Spontaneous
  Country: JP (occurrence: JP)
  Receive Date: 20241017
  Receipt Date: 20241017
  Transmission Date: 20250115
  Serious: Yes (Hospitalization)
  Sender: ELI LILLY AND COMPANY
  Company Number: JP-ELI_LILLY_AND_COMPANY-JP202410007533

PATIENT
  Age: 75 Year
  Sex: Female

DRUGS (1)
  1. RETEVMO [Suspect]
     Active Substance: SELPERCATINIB
     Indication: Colon cancer
     Dosage: 320 MG, DAILY
     Route: 048
     Dates: start: 20240910

REACTIONS (3)
  - Eastern Cooperative Oncology Group performance status worsened [Unknown]
  - Neutropenia [Unknown]
  - Rash [Unknown]
